FAERS Safety Report 19968984 (Version 3)
Quarter: 2021Q4

REPORT INFORMATION
  Report Type: Spontaneous
  Country: BR (occurrence: BR)
  Receive Date: 20211019
  Receipt Date: 20211124
  Transmission Date: 20220303
  Serious: No
  Sender: FDA-Public Use
  Company Number: BR-JNJFOC-20211010470

PATIENT
  Sex: Female
  Weight: 100 kg

DRUGS (3)
  1. FENTANYL [Suspect]
     Active Substance: FENTANYL
     Indication: Bone pain
     Dosage: STRENGTH: 50.00 MCG/HR
     Route: 062
  2. FENTANYL [Suspect]
     Active Substance: FENTANYL
  3. FENTANYL [Suspect]
     Active Substance: FENTANYL

REACTIONS (3)
  - Product adhesion issue [Unknown]
  - Underdose [Unknown]
  - Wrong technique in product usage process [Unknown]
